FAERS Safety Report 22638640 (Version 6)
Quarter: 2023Q4

REPORT INFORMATION
  Report Type: Spontaneous
  Country: PT (occurrence: PT)
  Receive Date: 20230626
  Receipt Date: 20231104
  Transmission Date: 20240110
  Serious: Yes (Hospitalization, Other)
  Sender: FDA-Public Use
  Company Number: PT-AUROBINDO-AUR-APL-2023-041423

PATIENT
  Age: 85 Year
  Sex: Female

DRUGS (12)
  1. APIXABAN [Suspect]
     Active Substance: APIXABAN
     Indication: Product used for unknown indication
     Dosage: 2.5 MILLIGRAM, TWO TIMES A DAY 2.5 MG, BID, (1 TABLET IN THE MORNING, 1 TABLET IN THE EVENING)
     Route: 048
     Dates: start: 2018
  2. APIXABAN [Suspect]
     Active Substance: APIXABAN
     Dosage: 2.5 MILLIGRAM TOTAL (2.5 MILLIGRAM 80 TABLETS/80 APIXABAN 2.5MG TABLETS 1 TOTAL)
     Route: 048
  3. IRBESARTAN [Suspect]
     Active Substance: IRBESARTAN
     Indication: Product used for unknown indication
     Dosage: 300 MILLIGRAM, ONCE A DAY (300 MG, QD, IN THE MORNING)
     Route: 048
     Dates: start: 201809
  4. IRBESARTAN [Suspect]
     Active Substance: IRBESARTAN
     Dosage: 300 MILLIGRAM (300 MILLIGRAM 30 TABLETS/30 IRBESARTAN 300MG TABLETS 1 TOTAL)
     Route: 048
     Dates: start: 202210
  5. DIGOXIN [Suspect]
     Active Substance: DIGOXIN
     Indication: Product used for unknown indication
     Dosage: 0.13 MILLIGRAM TOTAL (0.125 MILLIGRAM 20 TABLETS/20 DIGOXIN 0.125MG TABLETS 1 TOTAL)
     Route: 065
  6. DIGOXIN [Suspect]
     Active Substance: DIGOXIN
     Dosage: 0.13 MILLIGRAM, ONCE A DAY
     Route: 065
     Dates: start: 2011
  7. DIGOXIN [Suspect]
     Active Substance: DIGOXIN
     Dosage: 125 MICROGRAM
     Route: 048
  8. LERCANIDIPINE [Concomitant]
     Active Substance: LERCANIDIPINE
     Indication: Product used for unknown indication
     Dosage: 10 MILLIGRAM, ONCE A DAY (0 MG, QDLERCANIDIPINE)
     Route: 065
  9. LINAGLIPTIN [Concomitant]
     Active Substance: LINAGLIPTIN
     Indication: Product used for unknown indication
     Dosage: 5 MILLIGRAM, ONCE A DAY (5 MG, QD(1 TABLET IN THE MORNING)
     Route: 065
  10. CARVEDILOL [Concomitant]
     Active Substance: CARVEDILOL
     Indication: Product used for unknown indication
     Dosage: 25 MILLIGRAM, TWO TIMES A DAY 1/2 IN THE MORNING, 1/2 AT NIGHT))
     Route: 065
  11. PANTOPRAZOLE [Concomitant]
     Active Substance: PANTOPRAZOLE
     Indication: Product used for unknown indication
     Dosage: 40 MILLIGRAM, ONCE A DAY (IN THE MORNING)
     Route: 065
  12. MIRTAZAPINE [Concomitant]
     Active Substance: MIRTAZAPINE
     Indication: Product used for unknown indication
     Dosage: 15 MILLIGRAM, ONCE A DAY (1 TABLET AT NIGHT)
     Route: 065

REACTIONS (8)
  - Bradycardia [Recovered/Resolved]
  - Hypotension [Recovered/Resolved]
  - Suicide attempt [Unknown]
  - Toxicity to various agents [Recovered/Resolved]
  - Intentional overdose [Recovered/Resolved]
  - Poisoning [Unknown]
  - Hypertension [Recovered/Resolved]
  - Fatigue [Recovered/Resolved]
